FAERS Safety Report 9282691 (Version 1)
Quarter: 2013Q2

REPORT INFORMATION
  Report Type: Report from Study
  Country: BR (occurrence: BR)
  Receive Date: 20130510
  Receipt Date: 20130510
  Transmission Date: 20140414
  Serious: Yes (Other)
  Sender: FDA-Public Use
  Company Number: PHHY2013BR045665

PATIENT
  Age: 58 Year
  Sex: Female

DRUGS (3)
  1. FORASEQ [Suspect]
     Indication: ASTHMA
     Dosage: 2 DF, DAILY
  2. COLLAGEN [Concomitant]
     Indication: MUSCLE DISORDER
     Dosage: 2 DF, QD
     Route: 048
  3. OMEPRAZOLE [Concomitant]
     Indication: GASTRITIS
     Dosage: 1 DF, QD
     Route: 048

REACTIONS (6)
  - Fall [Recovering/Resolving]
  - Upper limb fracture [Recovering/Resolving]
  - Rheumatic disorder [Not Recovered/Not Resolved]
  - Osteoarthritis [Not Recovered/Not Resolved]
  - Arthritis [Not Recovered/Not Resolved]
  - Fibromyalgia [Not Recovered/Not Resolved]
